FAERS Safety Report 4940788-4 (Version None)
Quarter: 2006Q1

REPORT INFORMATION
  Report Type: 
  Country: None (occurrence: None)
  Receive Date: 20060307
  Receipt Date: 20060223
  Transmission Date: 20060701
  Serious: Yes (Other)
  Sender: FDA-Public Use
  Company Number: US-2005-022092

PATIENT
  Age: 49 Year
  Sex: Female

DRUGS (4)
  1. CLIMARA [Suspect]
     Indication: MENOPAUSAL SYMPTOMS
     Dosage: 0.1 MG/D, CONT, TRANSDERMAL
     Route: 062
     Dates: start: 20050921, end: 20050928
  2. ESTRADIOL [Concomitant]
  3. PRILOSEC [Concomitant]
  4. PROZAC [Concomitant]

REACTIONS (1)
  - PITYRIASIS RUBRA PILARIS [None]
